FAERS Safety Report 12499409 (Version 3)
Quarter: 2016Q3

REPORT INFORMATION
  Report Type: Spontaneous
  Country: JP (occurrence: JP)
  Receive Date: 20160627
  Receipt Date: 20160705
  Transmission Date: 20161109
  Serious: Yes (Death, Hospitalization)
  Sender: FDA-Public Use
  Company Number: JP-ABBVIE-16P-087-1658626-00

PATIENT
  Age: 76 Year
  Sex: Female

DRUGS (2)
  1. VIEKIRAX [Suspect]
     Active Substance: OMBITASVIR\PARITAPREVIR\RITONAVIR
     Indication: HEPATITIS C
     Route: 048
     Dates: start: 20160419, end: 20160621
  2. TACROLIMUS. [Interacting]
     Active Substance: TACROLIMUS
     Indication: PRODUCT USED FOR UNKNOWN INDICATION
     Route: 065

REACTIONS (10)
  - Escherichia infection [Unknown]
  - Drug level increased [Unknown]
  - Candida infection [Unknown]
  - Fall [Not Recovered/Not Resolved]
  - Immune system disorder [Unknown]
  - Cytomegalovirus infection [Unknown]
  - Respiratory failure [Fatal]
  - Drug interaction [Unknown]
  - Face injury [Unknown]
  - Pneumonia [Fatal]

NARRATIVE: CASE EVENT DATE: 201606
